FAERS Safety Report 14121184 (Version 1)
Quarter: 2017Q4

REPORT INFORMATION
  Report Type: Spontaneous
  Country: US (occurrence: US)
  Receive Date: 20171024
  Receipt Date: 20171024
  Transmission Date: 20180321
  Serious: Yes (Disabling)
  Sender: FDA-Public Use
  Company Number: US-ELI_LILLY_AND_COMPANY-US201710007514

PATIENT
  Sex: Male

DRUGS (1)
  1. CYMBALTA [Suspect]
     Active Substance: DULOXETINE HYDROCHLORIDE
     Indication: NEURALGIA
     Dosage: 60 MG, DAILY
     Route: 065
     Dates: end: 201603

REACTIONS (4)
  - Crying [Recovering/Resolving]
  - Confusional state [Recovered/Resolved]
  - Anger [Recovering/Resolving]
  - Disturbance in attention [Recovering/Resolving]
